FAERS Safety Report 6530598-9 (Version None)
Quarter: 2010Q1

REPORT INFORMATION
  Report Type: 
  Country: None (occurrence: None)
  Receive Date: 20100108
  Receipt Date: 20091230
  Transmission Date: 20100710
  Serious: Yes (Life-Threatening, Hospitalization)
  Sender: FDA-Public Use
  Company Number: GB-RANBAXY-2009RR-29953

PATIENT
  Age: 23 Year
  Sex: Female

DRUGS (7)
  1. AMOXICILLIN [Suspect]
     Route: 065
  2. CLOZARIL [Suspect]
     Indication: SCHIZOPHRENIA
     Dosage: 1000 MG, UNK
     Route: 048
     Dates: start: 20030623, end: 20060504
  3. CLOZARIL [Suspect]
     Dosage: 700 MG, QD
     Route: 048
  4. HYOSCINE [Suspect]
     Route: 065
  5. SERTRALINE HCL [Suspect]
     Route: 065
  6. MOCLOBEMIDE [Concomitant]
     Indication: DEPRESSION
     Dosage: 600 MG, QD
     Route: 048
  7. SULPIRIDE [Concomitant]
     Indication: SCHIZOPHRENIA
     Dosage: 400 MG, QD
     Route: 048

REACTIONS (6)
  - ALANINE AMINOTRANSFERASE INCREASED [None]
  - LIVER FUNCTION TEST ABNORMAL [None]
  - LOSS OF CONSCIOUSNESS [None]
  - OVERDOSE [None]
  - VOMITING [None]
  - WEIGHT DECREASED [None]
